FAERS Safety Report 10206129 (Version 1)
Quarter: 2014Q2

REPORT INFORMATION
  Report Type: Spontaneous
  Country: US (occurrence: US)
  Receive Date: 20140530
  Receipt Date: 20140530
  Transmission Date: 20141212
  Serious: No
  Sender: FDA-Public Use
  Company Number: US-PFIZER INC-2014145344

PATIENT
  Sex: Female

DRUGS (2)
  1. GEODON [Suspect]
     Indication: BIPOLAR DISORDER
     Dosage: 80 MG, UNK
     Dates: start: 201405, end: 201405
  2. GEODON [Suspect]
     Indication: MANIA
     Dosage: 160 MG, UNK
     Dates: start: 201405

REACTIONS (6)
  - Drug ineffective [Unknown]
  - Energy increased [Unknown]
  - Speech disorder [Unknown]
  - Elevated mood [Unknown]
  - Anxiety [Unknown]
  - Agitation [Unknown]
